FAERS Safety Report 7319644 (Version 4)
Quarter: 2014Q1

REPORT INFORMATION
  Report Type: Report from Study
  Country: AR (occurrence: AR)
  Receive Date: 20100315
  Receipt Date: 20140303
  Transmission Date: 20141002
  Serious: Yes (Death)
  Sender: FDA-Public Use
  Company Number: PHHO2010AR03701

PATIENT
  Sex: 0

DRUGS (1)
  1. EXELON [Suspect]
     Indication: DEMENTIA
     Dosage: 10 MG, UNK
     Route: 062
     Dates: start: 20090513, end: 20100224

REACTIONS (1)
  - Acute myocardial infarction [Fatal]
